FAERS Safety Report 18306379 (Version 2)
Quarter: 2020Q4

REPORT INFORMATION
  Report Type: Other
  Country: DE (occurrence: DE)
  Receive Date: 20200923
  Receipt Date: 20201109
  Transmission Date: 20210113
  Serious: Yes (Other)
  Sender: FDA-Public Use
  Company Number: DE-ROCHE-2177964

PATIENT
  Age: 56 Year
  Sex: Female

DRUGS (12)
  1. OCREVUS [Suspect]
     Active Substance: OCRELIZUMAB
     Dosage: DATE OF TREATMENT: 28/FEB/2020 AND 19/SEP/2020
     Route: 042
     Dates: start: 20190212
  2. VITAMIN D3 [Concomitant]
     Active Substance: CHOLECALCIFEROL
  3. FENISTIL [Concomitant]
     Active Substance: DIMETHINDENE
     Indication: PREMEDICATION
  4. OCREVUS [Suspect]
     Active Substance: OCRELIZUMAB
     Indication: PRIMARY PROGRESSIVE MULTIPLE SCLEROSIS
     Dosage: 14/AUG/2018: 3RD INFUSION
     Route: 042
     Dates: start: 20180213
  5. OCREVUS [Suspect]
     Active Substance: OCRELIZUMAB
     Dosage: 3RD INFUSION
     Route: 042
     Dates: start: 20180814
  6. TIZANIDIN [Concomitant]
     Active Substance: TIZANIDINE HYDROCHLORIDE
  7. VENLAFAXIN [Concomitant]
     Active Substance: VENLAFAXINE HYDROCHLORIDE
  8. VALDOXAN [Concomitant]
     Active Substance: AGOMELATINE
  9. FAMPYRA [Concomitant]
     Active Substance: DALFAMPRIDINE
  10. DULOXETINE. [Concomitant]
     Active Substance: DULOXETINE
  11. PRAMIPEXOL [Concomitant]
     Active Substance: PRAMIPEXOLE
  12. URBASON [Concomitant]
     Active Substance: METHYLPREDNISOLONE
     Indication: PREMEDICATION

REACTIONS (8)
  - Psoriatic arthropathy [Not Recovered/Not Resolved]
  - Rash [Recovered/Resolved]
  - Onychomycosis [Not Recovered/Not Resolved]
  - Fatigue [Recovered/Resolved]
  - Body temperature increased [Recovered/Resolved]
  - Sinusitis [Recovered/Resolved]
  - Eye irritation [Recovered/Resolved]
  - Nasopharyngitis [Recovered/Resolved]

NARRATIVE: CASE EVENT DATE: 20180814
